FAERS Safety Report 4332989-3 (Version None)
Quarter: 2004Q1

REPORT INFORMATION
  Report Type: 
  Country: None (occurrence: None)
  Receive Date: 20040330
  Receipt Date: 20040317
  Transmission Date: 20041129
  Serious: Yes (Disabling)
  Sender: FDA-Public Use
  Company Number: 04P-056-0253858-00

PATIENT
  Age: 50 Year
  Sex: Male

DRUGS (1)
  1. TRICOR [Suspect]
     Indication: HYPERTRIGLYCERIDAEMIA
     Dosage: 160 MG, 1 IN 1 D, PER ORAL
     Route: 048
     Dates: start: 20030101, end: 20030101

REACTIONS (2)
  - DIFFICULTY IN WALKING [None]
  - MYOSITIS [None]
